FAERS Safety Report 9587198 (Version 2)
Quarter: 2013Q4

REPORT INFORMATION
  Report Type: Report from Study
  Country: TN (occurrence: TN)
  Receive Date: 20131003
  Receipt Date: 20131003
  Transmission Date: 20140711
  Serious: Yes (Other)
  Sender: FDA-Public Use
  Company Number: TN-ROCHE-1267216

PATIENT
  Sex: 0

DRUGS (2)
  1. BEVACIZUMAB [Suspect]
     Indication: CHOROIDAL NEOVASCULARISATION
     Route: 050
  2. BEVACIZUMAB [Suspect]
     Indication: OFF LABEL USE

REACTIONS (7)
  - Vitreous haemorrhage [Unknown]
  - Eye inflammation [Unknown]
  - Chorioretinal atrophy [Unknown]
  - Conjunctival haemorrhage [Unknown]
  - Corneal abrasion [Unknown]
  - Hypertension [Unknown]
  - Optic atrophy [Unknown]
